FAERS Safety Report 20977181 (Version 1)
Quarter: 2022Q2

REPORT INFORMATION
  Report Type: Report from Study
  Country: CA (occurrence: CA)
  Receive Date: 20220617
  Receipt Date: 20220617
  Transmission Date: 20220721
  Serious: Yes (Other)
  Sender: FDA-Public Use
  Company Number: CA-JNJFOC-20220213206

PATIENT
  Age: 61 Year
  Sex: Male
  Weight: 97.6 kg

DRUGS (2)
  1. STELARA [Suspect]
     Active Substance: USTEKINUMAB
     Indication: Crohn^s disease
     Route: 058
  2. STELARA [Suspect]
     Active Substance: USTEKINUMAB

REACTIONS (7)
  - Hypertension [Not Recovered/Not Resolved]
  - Localised infection [Recovered/Resolved]
  - Blood cholesterol increased [Unknown]
  - Ingrowing nail [Unknown]
  - Mental disorder [Unknown]
  - Headache [Unknown]
  - Off label use [Unknown]

NARRATIVE: CASE EVENT DATE: 20210101
